FAERS Safety Report 9201619 (Version 1)
Quarter: 2013Q2

REPORT INFORMATION
  Report Type: Spontaneous
  Country: US (occurrence: US)
  Receive Date: 20130401
  Receipt Date: 20130401
  Transmission Date: 20140414
  Serious: Yes (Other)
  Sender: FDA-Public Use
  Company Number: PHEH2012US020730

PATIENT
  Age: 54 Year
  Sex: Male
  Weight: 102.95 kg

DRUGS (2)
  1. GILENYA [Suspect]
     Indication: MULTIPLE SCLEROSIS
     Dosage: 0.5 MG, QD
     Route: 048
     Dates: start: 20121019, end: 20121120
  2. STEROIDS NOS [Concomitant]

REACTIONS (8)
  - Iritis [Recovered/Resolved]
  - Vitreous floaters [Not Recovered/Not Resolved]
  - Macular oedema [Recovered/Resolved]
  - Vision blurred [Recovering/Resolving]
  - Visual impairment [Not Recovered/Not Resolved]
  - Musculoskeletal stiffness [Not Recovered/Not Resolved]
  - Gait disturbance [Not Recovered/Not Resolved]
  - Muscle spasms [Not Recovered/Not Resolved]
